FAERS Safety Report 20893147 (Version 1)
Quarter: 2022Q2

REPORT INFORMATION
  Report Type: Spontaneous
  Country: CN (occurrence: CN)
  Receive Date: 20220531
  Receipt Date: 20220531
  Transmission Date: 20220720
  Serious: Yes (Death, Other)
  Sender: FDA-Public Use
  Company Number: CN-drreddys-LIT/CHN/22/0150585

PATIENT
  Age: 61 Year
  Sex: Male

DRUGS (5)
  1. ABIRATERONE [Suspect]
     Active Substance: ABIRATERONE
     Indication: Prostate cancer metastatic
     Dosage: SECOND-LINE TREATMENT WITH ABIRATERONE AND PREDNISONE
  2. ABIRATERONE [Suspect]
     Active Substance: ABIRATERONE
  3. PREDNISONE [Suspect]
     Active Substance: PREDNISONE
     Indication: Prostate cancer metastatic
  4. OLAPARIB [Suspect]
     Active Substance: OLAPARIB
     Indication: Prostate cancer metastatic
  5. TRIPTORELIN [Concomitant]
     Active Substance: TRIPTORELIN
     Indication: Prostate cancer metastatic

REACTIONS (2)
  - Condition aggravated [Fatal]
  - Drug resistance [Unknown]
